FAERS Safety Report 14673743 (Version 1)
Quarter: 2018Q1

REPORT INFORMATION
  Report Type: Spontaneous
  Country: US (occurrence: US)
  Receive Date: 20180323
  Receipt Date: 20180323
  Transmission Date: 20180509
  Serious: Yes (Other)
  Sender: FDA-Public Use
  Company Number: US-PFIZER INC-2018120560

PATIENT
  Age: 46 Year
  Sex: Female

DRUGS (2)
  1. METHOTREXATE SODIUM. [Suspect]
     Active Substance: METHOTREXATE SODIUM
     Indication: ADJUVANT THERAPY
     Dosage: 7.5 MG, WEEKLY
  2. ORENCIA [Concomitant]
     Active Substance: ABATACEPT

REACTIONS (9)
  - Nausea [Unknown]
  - Fatigue [Unknown]
  - Diarrhoea [Not Recovered/Not Resolved]
  - Arthritis [Not Recovered/Not Resolved]
  - Cachexia [Not Recovered/Not Resolved]
  - Abdominal pain [Unknown]
  - Gastrointestinal disorder [Not Recovered/Not Resolved]
  - Asthenia [Unknown]
  - Drug intolerance [Unknown]
